FAERS Safety Report 12961035 (Version 3)
Quarter: 2020Q2

REPORT INFORMATION
  Report Type: Report from Study
  Country: CH (occurrence: CH)
  Receive Date: 20161121
  Receipt Date: 20200409
  Transmission Date: 20200713
  Serious: Yes (Death, Life-Threatening, Hospitalization)
  Sender: FDA-Public Use
  Company Number: CH-AMGEN-CHECT2016105913

PATIENT
  Age: 45 Year
  Sex: Female
  Weight: 54 kg

DRUGS (13)
  1. 3M CAVILON ANTIFUNGAL [Concomitant]
     Active Substance: MICONAZOLE NITRATE
     Dosage: 1 UNK
     Route: 050
     Dates: start: 20160728, end: 20160811
  2. TALIMOGENE LAHERPAREPVEC [Suspect]
     Active Substance: TALIMOGENE LAHERPAREPVEC
     Indication: SQUAMOUS CELL CARCINOMA OF HEAD AND NECK
     Dosage: 4 ML, Q3WK
     Route: 026
     Dates: start: 20160713, end: 20160803
  3. LAXOBERON [Concomitant]
     Active Substance: SODIUM PICOSULFATE
     Dosage: 20 GTT, UNK
     Route: 048
     Dates: start: 20160630, end: 20160811
  4. NOVALGIN [Concomitant]
     Dosage: 40 MG -1 G, UNK
     Dates: start: 20150709, end: 20160814
  5. TEMGESIC [Concomitant]
     Active Substance: BUPRENORPHINE HYDROCHLORIDE
     Dosage: 0.2 MG, UNK
     Route: 048
     Dates: start: 20160504, end: 20160811
  6. AUGMENTIN [Concomitant]
     Active Substance: AMOXICILLIN\CLAVULANATE POTASSIUM
     Dosage: 11 ML-1 G, UNK
     Route: 048
     Dates: start: 20160810, end: 20160812
  7. TRANSIPEG [Concomitant]
     Dosage: 1 UNK, UNK
     Route: 048
     Dates: start: 20160728, end: 20160812
  8. TRANSTEC [Concomitant]
     Active Substance: BUPRENORPHINE
     Dosage: 1-2 UNK (35-52.5 MUG) QH
     Route: 062
     Dates: start: 20160508, end: 20160814
  9. LYRICA [Concomitant]
     Active Substance: PREGABALIN
     Dosage: 300 MG, UNK
     Route: 048
     Dates: start: 20160728, end: 20160811
  10. ONDASETRON [Concomitant]
     Active Substance: ONDANSETRON
     Dosage: 8 MG, UNK
     Route: 042
     Dates: start: 20160713, end: 20160803
  11. PEMBROLIZUMAB. [Suspect]
     Active Substance: PEMBROLIZUMAB
     Indication: SQUAMOUS CELL CARCINOMA OF HEAD AND NECK
     Dosage: 200 MG, Q3WK
     Route: 042
     Dates: start: 20160713, end: 20160803
  12. ALUCOL [Concomitant]
     Active Substance: ALUMINUM HYDROXIDE\MAGNESIUM HYDROXIDE
     Dosage: 3 UNK
     Route: 048
     Dates: start: 20160620, end: 20160811
  13. CLEXANE [Concomitant]
     Active Substance: ENOXAPARIN SODIUM
     Dosage: 80 MG/0.8 ML, UNK
     Route: 058
     Dates: start: 20160808, end: 20160811

REACTIONS (1)
  - Arterial haemorrhage [Fatal]

NARRATIVE: CASE EVENT DATE: 20160812
